FAERS Safety Report 5121704-1 (Version None)
Quarter: 2006Q4

REPORT INFORMATION
  Report Type: 
  Country: None (occurrence: None)
  Receive Date: 20061006
  Receipt Date: 20061002
  Transmission Date: 20070319
  Serious: Yes (Other)
  Sender: FDA-Public Use
  Company Number: GB-GLAXOSMITHKLINE-B0441017A

PATIENT
  Age: 36 Year
  Sex: Female

DRUGS (3)
  1. PRIADEL [Suspect]
     Indication: DEPRESSION
     Route: 065
  2. AMITRIPTYLINE HCL [Concomitant]
  3. VENLAFAXIINE HCL [Concomitant]

REACTIONS (3)
  - HYPOTHYROIDISM [None]
  - MALAISE [None]
  - OEDEMA PERIPHERAL [None]
